APPROVED DRUG PRODUCT: MORPHINE SULFATE
Active Ingredient: MORPHINE SULFATE
Strength: 100MG/5ML
Dosage Form/Route: SOLUTION;ORAL
Application: A206308 | Product #002
Applicant: RHODES PHARMACEUTICALS LP
Approved: Jun 22, 2017 | RLD: No | RS: No | Type: DISCN